FAERS Safety Report 4328383-1 (Version None)
Quarter: 2004Q1

REPORT INFORMATION
  Report Type: 
  Country: None (occurrence: None)
  Receive Date: 20040331
  Receipt Date: 20040322
  Transmission Date: 20041129
  Serious: Yes (Hospitalization)
  Sender: FDA-Public Use
  Company Number: PHBS2004SE03918

PATIENT
  Age: 43 Year
  Sex: Female

DRUGS (19)
  1. ZELMAC [Suspect]
     Indication: CONSTIPATION
     Dosage: 12 MG/DAY
     Route: 048
     Dates: start: 20040110, end: 20040112
  2. MOVICOL [Concomitant]
  3. IMIGRAN [Concomitant]
  4. NEURONTIN [Concomitant]
  5. KLYX [Concomitant]
  6. NEUROBION [Concomitant]
  7. BRICANYL [Concomitant]
  8. SOLVEZINK [Concomitant]
  9. KALIUM RETARD [Concomitant]
  10. HEPARIN [Concomitant]
  11. IPREN [Concomitant]
  12. ENOMDAN [Concomitant]
  13. PLENDIL [Concomitant]
  14. ZOFRAN [Concomitant]
  15. KALCIPOS-D [Concomitant]
  16. DIVIGEL [Concomitant]
  17. CLARITIN [Concomitant]
  18. SONATA [Concomitant]
  19. SELENIUM TRACE METAL ADDITIVE [Concomitant]

REACTIONS (1)
  - ABDOMINAL PAIN [None]
